FAERS Safety Report 10862641 (Version 3)
Quarter: 2015Q1

REPORT INFORMATION
  Report Type: Spontaneous
  Country: JP (occurrence: JP)
  Receive Date: 20150224
  Receipt Date: 20150319
  Transmission Date: 20150721
  Serious: Yes (Hospitalization)
  Sender: FDA-Public Use
  Company Number: JP-BAYER-2015-027631

PATIENT
  Age: 51 Year
  Sex: Female
  Weight: 64 kg

DRUGS (6)
  1. FESIN [Concomitant]
     Active Substance: IRON SUCROSE
     Indication: ANAEMIA
     Dosage: DAILY DOSE 80 MG
     Route: 042
     Dates: start: 20150109
  2. FERRUM [Concomitant]
     Active Substance: FERROUS FUMARATE
     Indication: ANAEMIA
     Dosage: DAILY DOSE 100 MG
     Route: 048
     Dates: end: 20150209
  3. FESIN [Concomitant]
     Active Substance: IRON SUCROSE
     Indication: ANAEMIA
     Dosage: DAILY DOSE 80 MG
     Route: 042
     Dates: end: 20141107
  4. FESIN [Concomitant]
     Active Substance: IRON SUCROSE
     Indication: ANAEMIA
     Dosage: DAILY DOSE 80 MG
     Route: 042
     Dates: start: 20150109
  5. MIRENA [Suspect]
     Active Substance: LEVONORGESTREL
     Indication: MENORRHAGIA
     Dosage: 20 MCG/24HR, CONT
     Route: 015
     Dates: start: 20141129
  6. NORVASC [Concomitant]
     Active Substance: AMLODIPINE BESYLATE
     Indication: HYPERTENSION
     Dosage: DAILY DOSE 2.5 MG
     Route: 048

REACTIONS (4)
  - Pyrexia [Recovered/Resolved]
  - Abdominal pain upper [None]
  - Abdominal pain [Recovered/Resolved]
  - Nausea [None]

NARRATIVE: CASE EVENT DATE: 20141205
